FAERS Safety Report 20400821 (Version 2)
Quarter: 2022Q1

REPORT INFORMATION
  Report Type: Spontaneous
  Country: US (occurrence: US)
  Receive Date: 20220131
  Receipt Date: 20220201
  Transmission Date: 20220423
  Serious: No
  Sender: FDA-Public Use
  Company Number: US-ABBVIE-21K-163-3947101-00

PATIENT
  Age: 27 Year
  Sex: Female
  Weight: 122.58 kg

DRUGS (9)
  1. HUMIRA [Suspect]
     Active Substance: ADALIMUMAB
     Indication: Psoriasis
     Route: 058
     Dates: start: 202104
  2. FUROSEMIDE [Concomitant]
     Active Substance: FUROSEMIDE
     Indication: Hypertension
  3. FUROSEMIDE [Concomitant]
     Active Substance: FUROSEMIDE
     Indication: Fluid retention
  4. LOSARTAN [Concomitant]
     Active Substance: LOSARTAN
     Indication: Hypertension
  5. METOPROLOL [Concomitant]
     Active Substance: METOPROLOL
     Indication: Hypertension
  6. METOPROLOL [Concomitant]
     Active Substance: METOPROLOL
     Indication: Tachycardia
  7. ATORVASTATIN [Concomitant]
     Active Substance: ATORVASTATIN
     Indication: Blood cholesterol increased
  8. ABILIFY [Concomitant]
     Active Substance: ARIPIPRAZOLE
     Indication: Bipolar disorder
  9. POTASSIUM CHLORIDE [Concomitant]
     Active Substance: POTASSIUM CHLORIDE
     Indication: Electrolyte substitution therapy

REACTIONS (5)
  - Injection site pain [Recovering/Resolving]
  - Injection site bruising [Not Recovered/Not Resolved]
  - Injection site haemorrhage [Recovering/Resolving]
  - Device issue [Unknown]
  - Incorrect dose administered [Unknown]

NARRATIVE: CASE EVENT DATE: 20210610
